FAERS Safety Report 13134350 (Version 1)
Quarter: 2017Q1

REPORT INFORMATION
  Report Type: Spontaneous
  Country: US (occurrence: US)
  Receive Date: 20170120
  Receipt Date: 20170120
  Transmission Date: 20170428
  Serious: Yes (Hospitalization)
  Sender: FDA-Public Use
  Company Number: US-TOLMAR, INC.-2016US010376

PATIENT
  Age: 65 Year
  Sex: Male

DRUGS (1)
  1. ELIGARD [Suspect]
     Active Substance: LEUPROLIDE ACETATE
     Indication: PROSTATE CANCER METASTATIC
     Dosage: 30 MG, 4 MONTH DOSE
     Route: 030
     Dates: start: 20161024

REACTIONS (5)
  - Incorrect dose administered [Unknown]
  - Incorrect route of drug administration [Unknown]
  - Wrong technique in product usage process [Unknown]
  - Product reconstitution issue [Unknown]
  - Neck injury [Unknown]

NARRATIVE: CASE EVENT DATE: 20161024
